FAERS Safety Report 20390917 (Version 1)
Quarter: 2022Q1

REPORT INFORMATION
  Report Type: Spontaneous
  Country: US (occurrence: None)
  Receive Date: 20220127
  Receipt Date: 20220127
  Transmission Date: 20220423
  Serious: No
  Sender: FDA-Public Use
  Company Number: None

PATIENT
  Sex: Female

DRUGS (1)
  1. SODIUM CHLORIDE [Suspect]
     Active Substance: SODIUM CHLORIDE
     Indication: Pulmonary arterial hypertension
     Dosage: 20NK/KG/MIN  CONTINUOUS IV?
     Route: 042
     Dates: start: 202112

REACTIONS (3)
  - Abdominal pain [None]
  - Diarrhoea [None]
  - Loss of personal independence in daily activities [None]
